FAERS Safety Report 26191878 (Version 1)
Quarter: 2025Q4

REPORT INFORMATION
  Report Type: Spontaneous
  Country: US (occurrence: None)
  Receive Date: 20251223
  Receipt Date: 20251223
  Transmission Date: 20260118
  Serious: Yes (unspecified)
  Sender: FDA-CTU
  Company Number: None

PATIENT
  Age: 62 Year
  Sex: Female

DRUGS (4)
  1. VRAYLAR [Suspect]
     Active Substance: CARIPRAZINE
     Indication: Depression
     Dates: start: 20250820, end: 20251011
  2. CAPLYTA [Suspect]
     Active Substance: LUMATEPERONE
     Indication: Depression
     Dates: start: 202510, end: 20251111
  3. Linctal [Concomitant]
  4. Vibrid [Concomitant]

REACTIONS (7)
  - Urticaria [None]
  - Pruritus [None]
  - Myalgia [None]
  - Muscular weakness [None]
  - Pain in extremity [None]
  - Anxiety [None]
  - Palpitations [None]

NARRATIVE: CASE EVENT DATE: 20251011
